FAERS Safety Report 18914863 (Version 1)
Quarter: 2021Q1

REPORT INFORMATION
  Report Type: Spontaneous
  Country: US (occurrence: US)
  Receive Date: 20210218
  Receipt Date: 20210218
  Transmission Date: 20210420
  Serious: Yes (Life-Threatening)
  Sender: FDA-Public Use
  Company Number: None

PATIENT
  Age: 70 Year
  Sex: Male
  Weight: 100.8 kg

DRUGS (1)
  1. ERLEADA [Suspect]
     Active Substance: APALUTAMIDE
     Indication: PROSTATE CANCER
     Route: 048
     Dates: start: 20210116, end: 20210212

REACTIONS (11)
  - Erythema [None]
  - Skin plaque [None]
  - Chills [None]
  - Rash [None]
  - Arthralgia [None]
  - Skin exfoliation [None]
  - Myalgia [None]
  - Pain [None]
  - Fatigue [None]
  - Rash pruritic [None]
  - Rash papular [None]

NARRATIVE: CASE EVENT DATE: 20210205
